FAERS Safety Report 17307585 (Version 1)
Quarter: 2020Q1

REPORT INFORMATION
  Report Type: Spontaneous
  Country: US (occurrence: US)
  Receive Date: 20200123
  Receipt Date: 20200123
  Transmission Date: 20200409
  Serious: No
  Sender: FDA-Public Use
  Company Number: US-TEVA-2020-US-1171187

PATIENT
  Age: 25 Year
  Sex: Female

DRUGS (1)
  1. KELNOR 1/35 [Suspect]
     Active Substance: ETHINYL ESTRADIOL\ETHYNODIOL DIACETATE
     Indication: MENSTRUAL DISORDER
     Route: 065

REACTIONS (3)
  - Headache [Unknown]
  - Tachycardia [Unknown]
  - Hypertension [Unknown]
